FAERS Safety Report 19176718 (Version 1)
Quarter: 2021Q2

REPORT INFORMATION
  Report Type: Spontaneous
  Country: US (occurrence: US)
  Receive Date: 20210424
  Receipt Date: 20210424
  Transmission Date: 20210717
  Serious: Yes (Hospitalization, Other)
  Sender: FDA-Public Use
  Company Number: US-INVENTIA-000478

PATIENT
  Age: 43 Year
  Sex: Female

DRUGS (2)
  1. DULOXETINE. [Suspect]
     Active Substance: DULOXETINE
     Indication: PAIN
  2. MODAFINIL. [Concomitant]
     Active Substance: MODAFINIL
     Dosage: TWICE DAILY

REACTIONS (1)
  - Drug-induced liver injury [Recovering/Resolving]
